FAERS Safety Report 5536270-6 (Version None)
Quarter: 2007Q4

REPORT INFORMATION
  Report Type: 
  Country: None (occurrence: None)
  Receive Date: 20071206
  Receipt Date: 20071205
  Transmission Date: 20080405
  Serious: Yes (Other)
  Sender: FDA-Public Use
  Company Number: ES-BOEHRINGER INGELHEIM PHARMACEUTICALS, INC.-2007-ES-00181ES

PATIENT
  Age: 79 Year
  Sex: Male

DRUGS (2)
  1. MICARDIS [Suspect]
     Route: 048
     Dates: start: 20070620, end: 20070829
  2. PROCORALAN [Suspect]
     Route: 048
     Dates: start: 20070620, end: 20070829

REACTIONS (2)
  - ANGINA PECTORIS [None]
  - CONDITION AGGRAVATED [None]
